FAERS Safety Report 15633581 (Version 2)
Quarter: 2018Q4

REPORT INFORMATION
  Report Type: Report from Study
  Country: ZA (occurrence: ZA)
  Receive Date: 20181119
  Receipt Date: 20181126
  Transmission Date: 20190205
  Serious: Yes (Hospitalization, Other)
  Sender: FDA-Public Use
  Company Number: ZA-SA-2018SA304838

PATIENT
  Age: 44 Year
  Sex: Male

DRUGS (5)
  1. INSULIN GLULISINE [Suspect]
     Active Substance: INSULIN GLULISINE
     Indication: TYPE 2 DIABETES MELLITUS
     Dosage: 14 U, TID, 14 UNITS IN BREAKFAST, 14 UNITS IN LUNCH, 14 UNITS IN SUPPER
     Route: 065
     Dates: start: 20181026
  2. WARFARIN [Concomitant]
     Active Substance: WARFARIN
     Dosage: 10 MG, QD, BEFORE BREAKFAST
     Dates: start: 20181025
  3. METFORMIN [Concomitant]
     Active Substance: METFORMIN HYDROCHLORIDE
     Dosage: 850 MG, TID, AFTER SUPPER, AFTER LUNCH, AFTER BREAKFAST
     Dates: start: 20020601
  4. OPTISULIN (INSULIN GLARGINE) [Suspect]
     Active Substance: INSULIN GLARGINE
     Indication: TYPE 2 DIABETES MELLITUS
     Dosage: 55 U, HS BEDTIME
     Route: 065
     Dates: start: 20181026
  5. ADCO-SIMVASTATIN [Concomitant]
     Active Substance: SIMVASTATIN
     Dosage: 10 MG, HS, BEDTIME
     Dates: start: 20181102

REACTIONS (6)
  - Therapeutic response decreased [Unknown]
  - Pain in extremity [Not Recovered/Not Resolved]
  - Injection site infection [Not Recovered/Not Resolved]
  - Injection site abscess [Not Recovered/Not Resolved]
  - Blood glucose increased [Not Recovered/Not Resolved]
  - Hospitalisation [Unknown]

NARRATIVE: CASE EVENT DATE: 20181101
